FAERS Safety Report 6137733-5 (Version None)
Quarter: 2009Q1

REPORT INFORMATION
  Report Type: 
  Country: None (occurrence: None)
  Receive Date: 20090331
  Receipt Date: 20090326
  Transmission Date: 20090719
  Serious: Yes (Death)
  Sender: FDA-Public Use
  Company Number: US-CELGENEUS-163-21880-09031778

PATIENT
  Sex: Female

DRUGS (4)
  1. REVLIMID [Suspect]
     Indication: MULTIPLE MYELOMA
     Route: 048
     Dates: start: 20090301
  2. REVLIMID [Suspect]
     Route: 048
     Dates: start: 20080301, end: 20080801
  3. REVLIMID [Suspect]
     Route: 048
     Dates: start: 20070101, end: 20080201
  4. REVLIMID [Suspect]
     Route: 048
     Dates: start: 20081101

REACTIONS (1)
  - DEATH [None]
